FAERS Safety Report 6814590-2 (Version None)
Quarter: 2010Q2

REPORT INFORMATION
  Report Type: 
  Country: None (occurrence: None)
  Receive Date: 20100628
  Receipt Date: 20100621
  Transmission Date: 20101027
  Serious: Yes (Death, Other)
  Sender: FDA-Public Use
  Company Number: 014221

PATIENT
  Age: 46 Year
  Sex: Male

DRUGS (9)
  1. LORTAB [Suspect]
     Dates: start: 20030314
  2. LORTAB [Suspect]
     Dates: start: 20060419
  3. ACTIQ [Suspect]
     Dosage: (400MCG)
  4. PERCOCET [Suspect]
     Dates: start: 20060419
  5. METHADOSE [Suspect]
     Dates: start: 20060419
  6. SOMA [Suspect]
     Dates: start: 20030314
  7. SOMA [Suspect]
     Dates: start: 20060419
  8. VALIUM [Suspect]
  9. MEPROBAMATE [Suspect]

REACTIONS (12)
  - BRAIN INJURY [None]
  - CARDIO-RESPIRATORY ARREST [None]
  - CARDIOVASCULAR DISORDER [None]
  - DEPENDENCE [None]
  - DEPRESSED LEVEL OF CONSCIOUSNESS [None]
  - DRUG ABUSE [None]
  - DRUG TOXICITY [None]
  - INJURY [None]
  - LETHARGY [None]
  - MULTIPLE DRUG OVERDOSE ACCIDENTAL [None]
  - NO THERAPEUTIC RESPONSE [None]
  - SNORING [None]
